FAERS Safety Report 4357975-9 (Version None)
Quarter: 2004Q2

REPORT INFORMATION
  Report Type: 
  Country: None (occurrence: None)
  Receive Date: 20040510
  Receipt Date: 20040423
  Transmission Date: 20050107
  Serious: Yes (Hospitalization)
  Sender: FDA-Public Use
  Company Number: D01200401210

PATIENT
  Age: 72 Year
  Sex: Male

DRUGS (10)
  1. (SR57746 OR PLACEBO) - CAPSULE - 1 MG [Suspect]
     Indication: PROPHYLACTIC CHEMOTHERAPY
     Dosage: 1 MG QD
     Route: 048
     Dates: start: 20031020, end: 20040406
  2. (OXALIPLATIN) - SOLUTION - 85 MG/M2 [Suspect]
     Dosage: 85 MG/M2 Q2W
     Route: 042
     Dates: start: 20040405, end: 20040405
  3. FLUOROURACIL [Suspect]
     Dosage: 400 MG/M2 AS IV BOLUS THEN 600 MG/M2 AS 22 HOURS CONTINUOUS INFUSION D1-D2 Q2W
     Route: 042
     Dates: start: 20040405, end: 20040405
  4. LEUCOVORIN CALCIUM [Suspect]
     Dosage: 200 MG/M2 AS 2 HOURS INFUSION ON D1-D2 Q2W
     Route: 042
     Dates: start: 20040405, end: 20040405
  5. TROPISETRON HYDROCHLORIDE [Concomitant]
  6. DEXAMETHASONE [Concomitant]
  7. SALBUTAMOL SULFATE [Concomitant]
  8. VENLAFAXINE HCL [Concomitant]
  9. ACETAMINOPHEN [Concomitant]
  10. CETIRIZINE HCL [Concomitant]

REACTIONS (9)
  - C-REACTIVE PROTEIN INCREASED [None]
  - CHRONIC OBSTRUCTIVE AIRWAYS DISEASE [None]
  - DYSPNOEA [None]
  - NEUTROPHIL COUNT INCREASED [None]
  - PLEURAL EFFUSION [None]
  - PRODUCTIVE COUGH [None]
  - PYREXIA [None]
  - SEPSIS [None]
  - WHITE BLOOD CELL COUNT INCREASED [None]
